FAERS Safety Report 9235191 (Version 3)
Quarter: 2013Q2

REPORT INFORMATION
  Report Type: Spontaneous
  Country: US (occurrence: US)
  Receive Date: 20130417
  Receipt Date: 20130516
  Transmission Date: 20140414
  Serious: Yes (Hospitalization)
  Sender: FDA-Public Use
  Company Number: US-009507513-1304USA006514

PATIENT
  Age: 45 Year
  Sex: Female

DRUGS (1)
  1. SAPHRIS [Suspect]
     Indication: BIPOLAR I DISORDER
     Dosage: 10 MG, UNK
     Route: 060
     Dates: end: 20130411

REACTIONS (3)
  - Immobile [Recovering/Resolving]
  - Akathisia [Recovering/Resolving]
  - Musculoskeletal stiffness [Recovering/Resolving]
